FAERS Safety Report 9517134 (Version 1)
Quarter: 2013Q3

REPORT INFORMATION
  Report Type: Spontaneous
  Country: US (occurrence: US)
  Receive Date: 20130911
  Receipt Date: 20130911
  Transmission Date: 20140515
  Serious: Yes (Other)
  Sender: FDA-Public Use
  Company Number: US-BAYER-2013-109799

PATIENT
  Age: 49 Year
  Sex: Female
  Weight: 82 kg

DRUGS (5)
  1. BETASERON [Suspect]
     Dosage: 1 ML, QOD
     Route: 058
     Dates: start: 2001
  2. PREDNISONE [Suspect]
     Indication: URTICARIA
     Dosage: UNK
  3. FISH OIL [Concomitant]
  4. MULTIVITAMIN [Concomitant]
  5. EFFEXOR [Concomitant]
     Dosage: 100 MG, UNK

REACTIONS (5)
  - Multiple sclerosis relapse [None]
  - Urticaria [None]
  - Urticaria [Unknown]
  - Rash macular [Unknown]
  - Vomiting [Recovered/Resolved]
